FAERS Safety Report 24715526 (Version 1)
Quarter: 2024Q4

REPORT INFORMATION
  Report Type: Spontaneous
  Country: BR (occurrence: BR)
  Receive Date: 20241210
  Receipt Date: 20241210
  Transmission Date: 20250115
  Serious: Yes (Hospitalization, Other)
  Sender: ROCHE
  Company Number: BR-ROCHE-10000150799

PATIENT
  Age: 53 Year
  Sex: Female
  Weight: 82 kg

DRUGS (6)
  1. MABTHERA [Suspect]
     Active Substance: RITUXIMAB
     Indication: Lymphocytic leukaemia
     Dosage: 500MG (10MG/ML) - 50ML 678,75GM
     Route: 042
     Dates: start: 20241125
  2. BENDAMUSTINE [Concomitant]
     Active Substance: BENDAMUSTINE
     Indication: Lymphocytic leukaemia
     Dosage: 126,7MG
     Route: 042
     Dates: start: 20241125
  3. ACETAMINOPHEN [Concomitant]
     Active Substance: ACETAMINOPHEN
     Indication: Chemotherapy
     Route: 042
     Dates: start: 20241125
  4. DEXAMETHASONE [Concomitant]
     Active Substance: DEXAMETHASONE
     Indication: Chemotherapy
     Route: 042
     Dates: start: 20241125
  5. ONDANSETRON [Concomitant]
     Active Substance: ONDANSETRON
     Indication: Chemotherapy
     Route: 042
     Dates: start: 20241125
  6. METFORMIN [Concomitant]
     Active Substance: METFORMIN HYDROCHLORIDE
     Indication: Diabetes mellitus
     Route: 042

REACTIONS (7)
  - Body temperature increased [Recovering/Resolving]
  - Headache [Recovering/Resolving]
  - Hypoxia [Recovering/Resolving]
  - Malaise [Recovering/Resolving]
  - Nausea [Recovering/Resolving]
  - Tremor [Recovering/Resolving]
  - Vomiting [Recovering/Resolving]

NARRATIVE: CASE EVENT DATE: 20241125
